FAERS Safety Report 4825113-1 (Version None)
Quarter: 2005Q4

REPORT INFORMATION
  Report Type: 
  Country: None (occurrence: None)
  Receive Date: 20051109
  Receipt Date: 20051109
  Transmission Date: 20060501
  Serious: Yes (Life-Threatening, Hospitalization, Other)
  Sender: FDA-Public Use
  Company Number: None

PATIENT
  Age: 24 Year
  Sex: Female
  Weight: 78.9259 kg

DRUGS (2)
  1. ORTHO EVRA [Suspect]
     Indication: CONTRACEPTION
     Dosage: 1      WEEK   TRANSDERMA
     Route: 062
     Dates: start: 20000324, end: 20030723
  2. ORTHO EVRA [Suspect]
     Indication: CONTRACEPTION
     Dosage: 1      WEEK   TRANSDERMA
     Route: 062
     Dates: start: 20040707, end: 20051101

REACTIONS (1)
  - CEREBROVASCULAR ACCIDENT [None]
